FAERS Safety Report 7569799-X (Version None)
Quarter: 2011Q2

REPORT INFORMATION
  Report Type: 
  Country: None (occurrence: None)
  Receive Date: 20110624
  Receipt Date: 20110615
  Transmission Date: 20111010
  Serious: Yes (Other)
  Sender: FDA-Public Use
  Company Number: US-JNJFOC-20110608647

PATIENT
  Sex: Female
  Weight: 64.41 kg

DRUGS (1)
  1. ELMIRON [Suspect]
     Indication: CYSTITIS INTERSTITIAL
     Route: 048
     Dates: start: 20080101

REACTIONS (3)
  - STRESS [None]
  - CYSTITIS-LIKE SYMPTOM [None]
  - EPSTEIN-BARR VIRUS INFECTION [None]
